FAERS Safety Report 18484940 (Version 1)
Quarter: 2020Q4

REPORT INFORMATION
  Report Type: Spontaneous
  Country: US (occurrence: US)
  Receive Date: 20201109
  Receipt Date: 20201109
  Transmission Date: 20210114
  Serious: No
  Sender: FDA-Public Use
  Company Number: None

PATIENT
  Age: 80 Year
  Sex: Female

DRUGS (1)
  1. PREGABALIN CAPSULE [Suspect]
     Active Substance: PREGABALIN

REACTIONS (3)
  - Swollen tongue [None]
  - Dry mouth [None]
  - Oropharyngeal pain [None]
